FAERS Safety Report 25076913 (Version 1)
Quarter: 2025Q1

REPORT INFORMATION
  Report Type: Report from Study
  Country: US (occurrence: US)
  Receive Date: 20250314
  Receipt Date: 20250314
  Transmission Date: 20250408
  Serious: Yes (Hospitalization)
  Sender: JOHNSON AND JOHNSON
  Company Number: US-JNJFOC-20250313322

PATIENT
  Age: 74 Year
  Sex: Male

DRUGS (1)
  1. TECVAYLI [Suspect]
     Active Substance: TECLISTAMAB-CQYV
     Indication: Product used for unknown indication
     Route: 065
     Dates: start: 20250213

REACTIONS (4)
  - Cytokine release syndrome [Recovering/Resolving]
  - Dyspnoea [Unknown]
  - Muscle spasms [Unknown]
  - Adverse reaction [Unknown]

NARRATIVE: CASE EVENT DATE: 20250215
